FAERS Safety Report 5002708-6 (Version None)
Quarter: 2006Q2

REPORT INFORMATION
  Report Type: 
  Country: None (occurrence: None)
  Receive Date: 20060516
  Receipt Date: 20060505
  Transmission Date: 20061013
  Serious: Yes (Life-Threatening, Hospitalization, Disabling)
  Sender: FDA-Public Use
  Company Number: CH-JNJFOC-20060405822

PATIENT
  Sex: Female

DRUGS (3)
  1. REMICADE [Suspect]
     Indication: CROHN'S DISEASE
     Route: 042
  2. IMUREK [Suspect]
     Indication: CROHN'S DISEASE
     Route: 048
  3. AGOPTON [Concomitant]
     Route: 048

REACTIONS (2)
  - SMALL INTESTINE CARCINOMA [None]
  - VAGINAL FISTULA [None]
